FAERS Safety Report 5822879-9 (Version None)
Quarter: 2008Q3

REPORT INFORMATION
  Report Type: 
  Country: None (occurrence: None)
  Receive Date: 20080724
  Receipt Date: 20080724
  Transmission Date: 20090109
  Serious: Yes (Other)
  Sender: FDA-Public Use
  Company Number: None

PATIENT
  Sex: Female
  Weight: 52.1637 kg

DRUGS (2)
  1. ZOLPIDEM [Suspect]
     Indication: INSOMNIA
     Dosage: ONE OD PO
     Route: 048
     Dates: start: 20080101, end: 20080301
  2. ACTONEL [Suspect]
     Indication: OSTEOPOROSIS
     Dosage: ? ? PO TWICE
     Route: 048

REACTIONS (2)
  - AMNESIA [None]
  - DYSPEPSIA [None]
